FAERS Safety Report 5808296-6 (Version None)
Quarter: 2008Q3

REPORT INFORMATION
  Report Type: 
  Country: None (occurrence: None)
  Receive Date: 20080709
  Receipt Date: 20080630
  Transmission Date: 20090109
  Serious: Yes (Death)
  Sender: FDA-Public Use
  Company Number: 2008AL007757

PATIENT
  Age: 81 Year
  Sex: Male
  Weight: 80.7403 kg

DRUGS (7)
  1. DIGOXIN [Suspect]
     Indication: ARRHYTHMIA
     Dosage: 0.25MG DAILY PO
     Route: 048
     Dates: end: 20080114
  2. NITRO-BID [Concomitant]
  3. COUMADIN [Concomitant]
  4. ALDACTONE [Concomitant]
  5. LEVOTHROID [Concomitant]
  6. COREG [Concomitant]
  7. LASIX [Concomitant]

REACTIONS (4)
  - ANOREXIA [None]
  - CARDIAC ARREST [None]
  - DIZZINESS [None]
  - HYPOTENSION [None]
